FAERS Safety Report 8851424 (Version 1)
Quarter: 2012Q4

REPORT INFORMATION
  Report Type: 
  Country: US (occurrence: US)
  Receive Date: 20121021
  Receipt Date: 20121021
  Transmission Date: 20130627
  Serious: Yes (Other)
  Sender: FDA-Public Use
  Company Number: US-TEVA-316848USA

PATIENT

DRUGS (2)
  1. VINCRISTINE [Suspect]
  2. HEPARIN [Concomitant]

REACTIONS (3)
  - Hypersensitivity [Unknown]
  - Anaphylactic reaction [Unknown]
  - Oedema [Unknown]
